FAERS Safety Report 10183471 (Version 1)
Quarter: 2014Q2

REPORT INFORMATION
  Report Type: Spontaneous
  Country: US (occurrence: US)
  Receive Date: 20140520
  Receipt Date: 20140520
  Transmission Date: 20141212
  Serious: Yes (Hospitalization, Other)
  Sender: FDA-Public Use
  Company Number: US-GILEAD-2014-0102441

PATIENT
  Age: 45 Year
  Sex: Male

DRUGS (6)
  1. SOVALDI [Suspect]
     Indication: HEPATITIS C
     Dosage: 400 MG, QD
     Route: 048
  2. CODEINE [Suspect]
     Indication: PRODUCT USED FOR UNKNOWN INDICATION
  3. PHENAZOPYRIDINE [Suspect]
     Indication: PRODUCT USED FOR UNKNOWN INDICATION
  4. CIPROFLOXACIN [Suspect]
     Indication: PRODUCT USED FOR UNKNOWN INDICATION
  5. TAMSULOSIN [Suspect]
     Indication: PRODUCT USED FOR UNKNOWN INDICATION
  6. RIBAVIRIN [Concomitant]

REACTIONS (6)
  - Nephrolithiasis [Unknown]
  - Fluid retention [Recovered/Resolved]
  - Testicular swelling [Recovering/Resolving]
  - Drug dose omission [Unknown]
  - Abdominal discomfort [Unknown]
  - Abdominal discomfort [Unknown]
